FAERS Safety Report 4998814-2 (Version None)
Quarter: 2006Q2

REPORT INFORMATION
  Report Type: 
  Country: None (occurrence: None)
  Receive Date: 20060510
  Receipt Date: 20060314
  Transmission Date: 20061013
  Serious: Yes (Hospitalization)
  Sender: FDA-Public Use
  Company Number: CG-MERCK-0604USA02877

PATIENT
  Age: 43 Year
  Sex: Female
  Weight: 63 kg

DRUGS (1)
  1. STROMECTOL [Suspect]
     Route: 048

REACTIONS (4)
  - ARTHRALGIA [None]
  - EYE DISORDER [None]
  - HEADACHE [None]
  - OCULAR HYPERAEMIA [None]
